FAERS Safety Report 5848627-4 (Version None)
Quarter: 2008Q3

REPORT INFORMATION
  Report Type: 
  Country: None (occurrence: None)
  Receive Date: 20080818
  Receipt Date: 20080807
  Transmission Date: 20090109
  Serious: Yes (Other)
  Sender: FDA-Public Use
  Company Number: CA-ELI_LILLY_AND_COMPANY-CA200807001143

PATIENT
  Age: 7 Year
  Sex: Male

DRUGS (4)
  1. STRATTERA [Suspect]
     Indication: ATTENTION DEFICIT/HYPERACTIVITY DISORDER
     Dosage: 18 MG, UNK
     Dates: start: 20080511, end: 20080101
  2. STRATTERA [Suspect]
     Dosage: 25 MG, UNK
     Dates: start: 20080101, end: 20080101
  3. STRATTERA [Suspect]
     Dosage: 35 MG, UNK
     Dates: start: 20080101, end: 20080101
  4. STRATTERA [Suspect]
     Dosage: 25 MG, UNK
     Route: 048
     Dates: start: 20080101, end: 20080703

REACTIONS (2)
  - AGGRESSION [None]
  - INTENTIONAL SELF-INJURY [None]
